FAERS Safety Report 7906995-3 (Version None)
Quarter: 2011Q4

REPORT INFORMATION
  Report Type: 
  Country: None (occurrence: None)
  Receive Date: 20111110
  Receipt Date: 20111102
  Transmission Date: 20120403
  Serious: Yes (Other)
  Sender: FDA-Public Use
  Company Number: FI-PFIZER INC-2011272749

PATIENT

DRUGS (1)
  1. ZIPRASIDONE HYDROCHLORIDE [Suspect]

REACTIONS (2)
  - SEDATION [None]
  - HEART RATE DECREASED [None]
